FAERS Safety Report 12573760 (Version 1)
Quarter: 2016Q3

REPORT INFORMATION
  Report Type: Spontaneous
  Country: US (occurrence: None)
  Receive Date: 20160719
  Receipt Date: 20160719
  Transmission Date: 20161109
  Serious: Yes (Other)
  Sender: FDA-Public Use
  Company Number: None

PATIENT
  Age: 5 Day
  Sex: Female
  Weight: 3.3 kg

DRUGS (1)
  1. GENTAMICIN, 10MG/ML 2 ML VIAL FRESENIUS KABI [Suspect]
     Active Substance: GENTAMICIN
     Indication: SEPSIS
     Route: 042
     Dates: start: 20160629, end: 20160707

REACTIONS (3)
  - Drug level increased [None]
  - Product quality issue [None]
  - Accidental overdose [None]

NARRATIVE: CASE EVENT DATE: 20160704
